FAERS Safety Report 17871250 (Version 1)
Quarter: 2020Q2

REPORT INFORMATION
  Report Type: Spontaneous
  Country: US (occurrence: US)
  Receive Date: 20200606
  Receipt Date: 20200606
  Transmission Date: 20200714
  Serious: Yes (Hospitalization)
  Sender: FDA-Public Use
  Company Number: None

PATIENT
  Age: 58 Year
  Sex: Male

DRUGS (1)
  1. HARVONI [Suspect]
     Active Substance: LEDIPASVIR\SOFOSBUVIR
     Indication: HEPATITIS C
     Dosage: ?          OTHER DOSE:90-400MG;?
     Route: 048
     Dates: start: 202005

REACTIONS (5)
  - Dysuria [None]
  - Headache [None]
  - Prostate infection [None]
  - Urinary tract infection [None]
  - Nausea [None]

NARRATIVE: CASE EVENT DATE: 20200603
